FAERS Safety Report 5109707-4 (Version None)
Quarter: 2006Q3

REPORT INFORMATION
  Report Type: 
  Country: None (occurrence: None)
  Receive Date: 20060918
  Receipt Date: 20060830
  Transmission Date: 20061208
  Serious: Yes (Other)
  Sender: FDA-Public Use
  Company Number: JP200609000360

PATIENT
  Age: 31 Year
  Sex: Male

DRUGS (2)
  1. HUMULIN R [Suspect]
     Indication: DIABETES MELLITUS
     Dates: start: 20050101, end: 20050101
  2. POTASSIUM (POTASSIUM) [Concomitant]

REACTIONS (3)
  - CONDITION AGGRAVATED [None]
  - HYPOKALAEMIA [None]
  - VENTRICULAR FIBRILLATION [None]
